FAERS Safety Report 7487449-8 (Version None)
Quarter: 2011Q2

REPORT INFORMATION
  Report Type: 
  Country: None (occurrence: None)
  Receive Date: 20110510
  Receipt Date: 20110427
  Transmission Date: 20111010
  Serious: Yes (Other)
  Sender: FDA-Public Use
  Company Number: FK201100866

PATIENT
  Age: 43 Year
  Sex: Male

DRUGS (1)
  1. HALOPERIDOL DECANOATE [Suspect]
     Indication: PRODUCT USED FOR UNKNOWN INDICATION

REACTIONS (2)
  - CHOLESTASIS [None]
  - HEPATOTOXICITY [None]
